FAERS Safety Report 10061371 (Version 2)
Quarter: 2014Q2

REPORT INFORMATION
  Report Type: Report from Study
  Country: GB (occurrence: GB)
  Receive Date: 20140407
  Receipt Date: 20140603
  Transmission Date: 20141212
  Serious: Yes (Hospitalization)
  Sender: FDA-Public Use
  Company Number: GB-JNJFOC-20140315582

PATIENT
  Age: 76 Year
  Sex: Male
  Weight: 104.5 kg

DRUGS (8)
  1. ABIRATERONE ACETATE [Suspect]
     Indication: PROSTATE CANCER METASTATIC
     Dosage: 250 MG
     Route: 048
  2. PAROXETINE [Concomitant]
     Route: 048
     Dates: start: 20140323
  3. ZOPICLONE [Concomitant]
     Route: 048
     Dates: start: 20140323
  4. PREDNISOLONE [Concomitant]
     Route: 048
     Dates: start: 20140323
  5. AMLODIPINE [Concomitant]
     Route: 048
     Dates: start: 20140323
  6. LANSOPRAZOLE [Concomitant]
     Route: 048
     Dates: start: 20140323
  7. CO-CODAMOL [Concomitant]
     Dosage: 30 %, 500, MAXIMUM FREQUENCY 6, WHEN REQUIRED
     Route: 048
     Dates: start: 20140323
  8. IBUPROFEN [Concomitant]
     Dosage: WHEN REQUIRED
     Route: 061
     Dates: start: 20140323

REACTIONS (1)
  - Epistaxis [Recovered/Resolved]
